FAERS Safety Report 11631557 (Version 2)
Quarter: 2015Q4

REPORT INFORMATION
  Report Type: Spontaneous
  Country: KW (occurrence: KW)
  Receive Date: 20151015
  Receipt Date: 20151023
  Transmission Date: 20160304
  Serious: Yes (Hospitalization)
  Sender: FDA-Public Use
  Company Number: KW-AMGEN-KWTSP2015083341

PATIENT
  Age: 73 Year
  Sex: Female

DRUGS (19)
  1. DILTIAZEM HCL [Concomitant]
     Active Substance: DILTIAZEM HYDROCHLORIDE
     Dosage: 90 MG, 1X/DAY
  2. CALCIUM + VIT D [Concomitant]
     Active Substance: CALCIUM\VITAMIN D
     Dosage: UNK, 2X/DAY
  3. WARFARIN [Concomitant]
     Active Substance: WARFARIN
     Dosage: 7.5 MG, 1X/DAY
  4. COUMADINE [Concomitant]
     Active Substance: WARFARIN SODIUM
     Dosage: 5 MG, 1X/DAY
  5. MULTI B COMPLEX [Concomitant]
     Dosage: UNK, 1X/DAY
  6. ENBREL [Suspect]
     Active Substance: ETANERCEPT
     Indication: RHEUMATOID ARTHRITIS
     Dosage: 50 MG, EVERY 3 WEEKS
     Route: 058
     Dates: start: 20150718, end: 2015
  7. DISFLATYL                          /00159501/ [Concomitant]
     Dosage: 40 MG, 3X/DAY
  8. MINISEC [Concomitant]
     Dosage: 20 MG, 1X/DAY
  9. FEROSE                             /00023548/ [Concomitant]
     Dosage: 100 MG, 1X/DAY
  10. ZESTRIL [Concomitant]
     Active Substance: LISINOPRIL
     Dosage: 10 MG, 1X/DAY
  11. GLUCOPRESS [Concomitant]
     Dosage: 500 MG, 2X/DAY
  12. LIPITOR [Concomitant]
     Active Substance: ATORVASTATIN CALCIUM
     Dosage: 20 MG, 1X/DAY
  13. VASTAREL [Concomitant]
     Active Substance: TRIMETAZIDINE DIHYDROCHLORIDE
     Dosage: 35 MG, 1X/DAY
  14. PLAVIX [Concomitant]
     Active Substance: CLOPIDOGREL BISULFATE
     Dosage: 75 MG, 1X/DAY
  15. NU SEALS [Concomitant]
     Dosage: 75 MG, 1X/DAY
  16. GALVUS [Concomitant]
     Active Substance: VILDAGLIPTIN
     Dosage: 50 MG, 1X/DAY
  17. LASIX [Concomitant]
     Active Substance: FUROSEMIDE
     Dosage: 2 TAB OF 40 MG, 2X/DAY
  18. NOVOMIX [Concomitant]
     Active Substance: INSULIN ASPART
     Dosage: 70 UNITS IN AM + 32 UNITS IN PM / DAILY, DAILY
  19. ONE ALPHA [Concomitant]
     Active Substance: ALFACALCIDOL
     Dosage: 0.25 MG, 1X/DAY

REACTIONS (1)
  - Asthenia [Recovered/Resolved]

NARRATIVE: CASE EVENT DATE: 2015
